FAERS Safety Report 18886899 (Version 2)
Quarter: 2021Q2

REPORT INFORMATION
  Report Type: Report from Study
  Country: US (occurrence: US)
  Receive Date: 20210212
  Receipt Date: 20210608
  Transmission Date: 20210717
  Serious: No
  Sender: FDA-Public Use
  Company Number: US-TAKEDA-2021TUS006061

PATIENT
  Sex: Male
  Weight: 124 kg

DRUGS (23)
  1. HUMAN NORMAL IMMUNOGLOBULIN; LIQUID [Suspect]
     Active Substance: HUMAN IMMUNOGLOBULIN G
     Indication: MYASTHENIA GRAVIS
     Dosage: 1000 MILLIGRAM/KILOGRAM, Q3WEEKS
     Route: 042
     Dates: start: 20210106
  2. MESTINON [Concomitant]
     Active Substance: PYRIDOSTIGMINE BROMIDE
  3. IBUPROFEN. [Concomitant]
     Active Substance: IBUPROFEN
  4. EPINEPHRINE. [Concomitant]
     Active Substance: EPINEPHRINE
  5. FLONASE [Concomitant]
     Active Substance: FLUTICASONE PROPIONATE
  6. MELATONIN [Concomitant]
     Active Substance: MELATONIN
  7. PREDNISONE. [Concomitant]
     Active Substance: PREDNISONE
  8. B12 ACTIVE [Concomitant]
  9. VENTOLIN [Concomitant]
     Active Substance: ALBUTEROL SULFATE
  10. BUDESONIDE. [Concomitant]
     Active Substance: BUDESONIDE
  11. OMEPRAZOLE. [Concomitant]
     Active Substance: OMEPRAZOLE
  12. VITAMIN D3 [Concomitant]
     Active Substance: CHOLECALCIFEROL
  13. FORMOTEROL [Concomitant]
     Active Substance: FORMOTEROL
  14. ALLEGRA [Concomitant]
     Active Substance: FEXOFENADINE HYDROCHLORIDE
  15. DIPHENHYDRAMINE. [Concomitant]
     Active Substance: DIPHENHYDRAMINE
  16. SODIUM CHLORIDE. [Concomitant]
     Active Substance: SODIUM CHLORIDE
  17. OXYMETAZOLINE [Concomitant]
     Active Substance: OXYMETAZOLINE
  18. FUMARATE DISODIUM [Concomitant]
     Active Substance: DISODIUM FUMARATE
  19. HEPARIN [Concomitant]
     Active Substance: HEPARIN SODIUM
  20. GABAPENTIN. [Concomitant]
     Active Substance: GABAPENTIN
  21. ATROVENT [Concomitant]
     Active Substance: IPRATROPIUM BROMIDE
  22. PRADAXA [Concomitant]
     Active Substance: DABIGATRAN ETEXILATE MESYLATE
  23. OMEGA?3 FISH OIL [Concomitant]
     Active Substance: FISH OIL\OMEGA-3 FATTY ACIDS

REACTIONS (10)
  - Feeling abnormal [Unknown]
  - Hypertension [Unknown]
  - Nausea [Unknown]
  - Vision blurred [Unknown]
  - Infusion related reaction [Unknown]
  - Dizziness [Unknown]
  - Diarrhoea [Unknown]
  - Headache [Recovered/Resolved]
  - Dyspnoea [Unknown]
  - Off label use [Unknown]
